FAERS Safety Report 8226483-7 (Version None)
Quarter: 2012Q1

REPORT INFORMATION
  Report Type: 
  Country: None (occurrence: None)
  Receive Date: 20120322
  Receipt Date: 20120313
  Transmission Date: 20120608
  Serious: Yes (Hospitalization, Other)
  Sender: FDA-Public Use
  Company Number: US-ASTRAZENECA-2011SE63971

PATIENT
  Age: 75 Year
  Sex: Female

DRUGS (6)
  1. NEXIUM [Suspect]
     Route: 048
  2. ATACAND HCT [Suspect]
     Route: 048
  3. GLUCOPHAGE XL [Concomitant]
     Dosage: 1-2 TIMES
  4. CRESTOR [Suspect]
     Route: 048
  5. GLUCOPHAGE XL [Concomitant]
  6. CRESTOR [Suspect]
     Route: 048

REACTIONS (18)
  - AORTIC STENOSIS [None]
  - MAJOR DEPRESSION [None]
  - CARDIAC FAILURE CONGESTIVE [None]
  - VISUAL IMPAIRMENT [None]
  - SENSORY LOSS [None]
  - OSTEOARTHRITIS [None]
  - HAEMORRHAGE INTRACRANIAL [None]
  - CHRONIC OBSTRUCTIVE PULMONARY DISEASE [None]
  - EMPHYSEMA [None]
  - SOCIAL PROBLEM [None]
  - TREATMENT NONCOMPLIANCE [None]
  - INADEQUATE DIET [None]
  - TYPE 2 DIABETES MELLITUS [None]
  - HYPERTENSION [None]
  - DYSLIPIDAEMIA [None]
  - ANXIETY [None]
  - DYSPEPSIA [None]
  - ATRIAL FIBRILLATION [None]
